FAERS Safety Report 5253831-2 (Version None)
Quarter: 2007Q1

REPORT INFORMATION
  Report Type: 
  Country: None (occurrence: None)
  Receive Date: 20070227
  Receipt Date: 20070213
  Transmission Date: 20070707
  Serious: Yes (Death)
  Sender: FDA-Public Use
  Company Number: 237167

PATIENT
  Age: 67 Year
  Sex: Male
  Weight: 85 kg

DRUGS (11)
  1. AVASTIN [Suspect]
     Indication: COLORECTAL CANCER METASTATIC
     Dosage: 5 MG/KG,INTRAVENOUS
     Route: 042
     Dates: start: 20050706
  2. OXALIPLATIN [Suspect]
     Indication: COLORECTAL CANCER METASTATIC
     Dosage: 85 MG/M2,, INTRAVENOUS
     Route: 042
     Dates: start: 20050706
  3. FLUOROURACIL [Suspect]
     Indication: COLORECTAL CANCER METASTATIC
     Dosage: 2400 MG/M2,, INTRAVENOUS
     Route: 042
     Dates: start: 20050706
  4. LEUCOVORIN CALCIUM [Suspect]
     Indication: COLORECTAL CANCER METASTATIC
     Dosage: 200 MG/M2, UNK, INTRAVENOUS
     Route: 042
     Dates: start: 20050706
  5. CALCIUM/MAGNESIUM OR PLACEBO (CALCIUM/MAGNESIUM OR PLACEBO) [Suspect]
     Indication: COLORECTAL CANCER METASTATIC
     Dosage: Q2W
     Dates: start: 20050706
  6. ESCITALOPRAM OXALATE (ESCITALOPRAM OXALATE) [Concomitant]
  7. CARBIDOPA/LEVODOPA (CARBIDOPA, LEVODOPA) [Concomitant]
  8. UBIDECARENONE (UBIDECARENONE) [Concomitant]
  9. DRONABINOL [Concomitant]
  10. ONDANSETRON HCL [Concomitant]
  11. ALPRAZOLAM [Concomitant]

REACTIONS (1)
  - DEATH [None]
